FAERS Safety Report 8844810 (Version 1)
Quarter: 2012Q4

REPORT INFORMATION
  Report Type: 
  Country: US (occurrence: US)
  Receive Date: 20121017
  Receipt Date: 20121017
  Transmission Date: 20130627
  Serious: Yes (Hospitalization)
  Sender: FDA-Public Use
  Company Number: US-B.I. PHARMACEUTICALS,INC./RIDGEFIELD-2012-BP-25137BP

PATIENT
  Age: 55 None
  Sex: Female
  Weight: 88 kg

DRUGS (10)
  1. SPIRIVA [Suspect]
     Indication: CHRONIC OBSTRUCTIVE PULMONARY DISEASE
     Dosage: 18 mcg
     Route: 055
     Dates: start: 201103
  2. SPIRIVA [Suspect]
     Dosage: 18 mcg
     Route: 048
     Dates: start: 20121011, end: 20121011
  3. METFORMIN [Concomitant]
     Indication: DIABETES MELLITUS
     Dosage: 2000 mg
     Route: 048
     Dates: start: 2010
  4. ORPHENADRINE [Concomitant]
     Indication: FIBROMYALGIA
     Dosage: 200 mg
     Route: 048
     Dates: start: 2009
  5. MELOXICAM [Concomitant]
     Indication: FIBROMYALGIA
     Dosage: 15 mg
     Route: 048
     Dates: start: 2009
  6. LEVOTHYROXINE [Concomitant]
     Indication: HYPOTHYROIDISM
     Dosage: 175 mcg
     Route: 048
  7. RANITIDINE [Concomitant]
     Indication: GASTRITIS
     Dosage: 600 mg
     Route: 048
     Dates: start: 2002
  8. HYDROCHLOROTHIAZIDE [Concomitant]
     Indication: DYSURIA
     Dosage: 25 mg
     Route: 048
  9. GABAPENTIN [Concomitant]
     Indication: RESTLESS LEGS SYNDROME
     Dosage: 600 mg
     Route: 048
     Dates: start: 2007
  10. POTASSIUM CHLORIDE [Concomitant]
     Dosage: 20 mEq
     Route: 048
     Dates: start: 2004

REACTIONS (6)
  - Blister [Recovered/Resolved]
  - Skin exfoliation [Not Recovered/Not Resolved]
  - Blister [Not Recovered/Not Resolved]
  - Hypertension [Recovered/Resolved]
  - Blood cholesterol increased [Not Recovered/Not Resolved]
  - Incorrect route of drug administration [Recovered/Resolved]
